FAERS Safety Report 4312162-5 (Version None)
Quarter: 2004Q1

REPORT INFORMATION
  Report Type: 
  Country: None (occurrence: None)
  Receive Date: 20040302
  Receipt Date: 20031107
  Transmission Date: 20041129
  Serious: No
  Sender: FDA-Public Use
  Company Number: 200328282BWH

PATIENT
  Age: 76 Year
  Sex: Male

DRUGS (7)
  1. LEVITRA [Suspect]
     Indication: ERECTILE DYSFUNCTION
     Dosage: 10 MG, TOTAL DAILY, ORAL
     Route: 048
     Dates: start: 20031001
  2. ALTACE [Concomitant]
  3. HYDROCHLOROTHIAZIDE [Concomitant]
  4. LIPITOR [Concomitant]
  5. K-DUR 10 [Concomitant]
  6. VIAGRA [Concomitant]
  7. ASPIRIN [Concomitant]

REACTIONS (2)
  - ERECTILE DYSFUNCTION [None]
  - ERYTHEMA [None]
